FAERS Safety Report 9641781 (Version 3)
Quarter: 2013Q4

REPORT INFORMATION
  Report Type: Spontaneous
  Country: JP (occurrence: JP)
  Receive Date: 20131023
  Receipt Date: 20131108
  Transmission Date: 20140711
  Serious: Yes (Other)
  Sender: FDA-Public Use
  Company Number: JP-B.I. PHARMACEUTICALS,INC./RIDGEFIELD-2013-BI-30327NB

PATIENT
  Age: 66 Year
  Sex: Male

DRUGS (2)
  1. PRAZAXA [Suspect]
     Indication: CEREBROVASCULAR ACCIDENT PROPHYLAXIS
     Dosage: 220 MG
     Route: 048
     Dates: start: 20130818, end: 20130917
  2. BAYASPIRIN / ASPIRIN [Concomitant]
     Dosage: 100 MG
     Route: 048
     Dates: end: 201309

REACTIONS (2)
  - Cardiac disorder [Unknown]
  - Pulmonary alveolar haemorrhage [Not Recovered/Not Resolved]
